FAERS Safety Report 12155798 (Version 2)
Quarter: 2016Q2

REPORT INFORMATION
  Report Type: Spontaneous
  Country: CA (occurrence: CA)
  Receive Date: 20160307
  Receipt Date: 20160606
  Transmission Date: 20160815
  Serious: Yes (Other)
  Sender: FDA-Public Use
  Company Number: CA-BAYER-2016-042092

PATIENT
  Sex: Female

DRUGS (4)
  1. SULFASALAZINE. [Suspect]
     Active Substance: SULFASALAZINE
  2. ALEVE [Suspect]
     Active Substance: NAPROXEN SODIUM
  3. PLAQUENIL [Suspect]
     Active Substance: HYDROXYCHLOROQUINE SULFATE
  4. METHOTREXATE [Suspect]
     Active Substance: METHOTREXATE

REACTIONS (8)
  - Nausea [Unknown]
  - Peripheral swelling [Not Recovered/Not Resolved]
  - Musculoskeletal disorder [Unknown]
  - Vomiting [Unknown]
  - Haemoglobin decreased [Not Recovered/Not Resolved]
  - Weight decreased [Unknown]
  - Pain in extremity [Not Recovered/Not Resolved]
  - Blood iron decreased [Unknown]
